FAERS Safety Report 9294652 (Version 1)
Quarter: 2013Q2

REPORT INFORMATION
  Report Type: Spontaneous
  Country: US (occurrence: US)
  Receive Date: 20130516
  Receipt Date: 20130516
  Transmission Date: 20140414
  Serious: Yes (Hospitalization)
  Sender: FDA-Public Use
  Company Number: US-UCBSA-085775

PATIENT
  Age: 63 Year
  Sex: Female

DRUGS (1)
  1. CIMZIA [Suspect]
     Indication: RHEUMATOID ARTHRITIS

REACTIONS (10)
  - Fall [Recovered/Resolved]
  - Face injury [Recovered/Resolved]
  - Eye injury [Not Recovered/Not Resolved]
  - Vitreous floaters [Not Recovered/Not Resolved]
  - Memory impairment [Not Recovered/Not Resolved]
  - Viral infection [Recovered/Resolved]
  - Dehydration [Recovered/Resolved]
  - Arthralgia [Not Recovered/Not Resolved]
  - Drug ineffective [Unknown]
  - Joint stiffness [Not Recovered/Not Resolved]
